FAERS Safety Report 9176214 (Version 4)
Quarter: 2013Q2

REPORT INFORMATION
  Report Type: Spontaneous
  Country: GB (occurrence: GB)
  Receive Date: 20130321
  Receipt Date: 20130617
  Transmission Date: 20140414
  Serious: Yes (Other)
  Sender: FDA-Public Use
  Company Number: GB-009507513-1303GBR009240

PATIENT
  Age: 72 Year
  Sex: Male

DRUGS (8)
  1. ALENDRONATE SODIUM [Suspect]
     Dosage: 70 MG, QW
     Dates: start: 200803
  2. ADCAL-D3 [Interacting]
     Indication: GASTROINTESTINAL PAIN
     Dosage: 1 DF, ,2 /1DAY
     Dates: start: 200803
  3. QUESTRAN [Interacting]
     Dosage: UNK
     Route: 048
     Dates: start: 1990, end: 201005
  4. QUESTRAN [Interacting]
     Dosage: 1DF, 4 /1 DAY
     Dates: start: 20100505
  5. COLOFAC [Concomitant]
     Indication: GASTROINTESTINAL PAIN
     Dosage: 135 MG, TID
  6. CYANOCOBALAMIN [Concomitant]
  7. BENDROFLUMETHIAZIDE [Concomitant]
     Dosage: 2.5 MG, QD
  8. CODEINE [Concomitant]
     Dosage: 30 MG, UNK

REACTIONS (4)
  - Nephrolithiasis [Unknown]
  - Hypertension [Unknown]
  - Drug interaction [Unknown]
  - Osteoporosis [Not Recovered/Not Resolved]
